FAERS Safety Report 10620025 (Version 1)
Quarter: 2014Q4

REPORT INFORMATION
  Report Type: Spontaneous
  Country: US (occurrence: US)
  Receive Date: 20141202
  Receipt Date: 20141202
  Transmission Date: 20150529
  Serious: No
  Sender: FDA-Public Use
  Company Number: US-BAYER-2014-177500

PATIENT
  Age: 55 Year
  Sex: Female
  Weight: 171 kg

DRUGS (1)
  1. MAGNEVIST [Suspect]
     Active Substance: GADOPENTETATE DIMEGLUMINE
     Indication: ARTHROGRAM
     Dosage: 14 ML, ONCE
     Route: 042
     Dates: start: 20141126

REACTIONS (2)
  - Dysphonia [None]
  - Increased upper airway secretion [None]
